FAERS Safety Report 15423347 (Version 2)
Quarter: 2018Q4

REPORT INFORMATION
  Report Type: Spontaneous
  Country: ZA (occurrence: ZA)
  Receive Date: 20180925
  Receipt Date: 20181005
  Transmission Date: 20190204
  Serious: Yes (Congenital Anomaly, Other)
  Sender: FDA-Public Use
  Company Number: ZA-AUROBINDO-AUR-APL-2018-046537

PATIENT
  Age: 36 Week
  Sex: Female
  Weight: 3.2 kg

DRUGS (2)
  1. DOLUTEGRAVIR [Suspect]
     Active Substance: DOLUTEGRAVIR
     Indication: HIV INFECTION
     Dosage: UNK
     Route: 064
     Dates: start: 20180522
  2. NEVIRAPINE. [Suspect]
     Active Substance: NEVIRAPINE
     Indication: HIV INFECTION
     Dosage: 1.5 MILLILITER
     Route: 064
     Dates: start: 20180529

REACTIONS (2)
  - Congenital umbilical hernia [Unknown]
  - Foetal exposure during pregnancy [Unknown]
